FAERS Safety Report 10573673 (Version 1)
Quarter: 2014Q4

REPORT INFORMATION
  Report Type: Spontaneous
  Country: US (occurrence: None)
  Receive Date: 20141030
  Receipt Date: 20141030
  Transmission Date: 20150529
  Serious: Yes (Other)
  Sender: FDA-Public Use
  Company Number: PHEH2014US004868

PATIENT
  Age: 77 Year
  Sex: Female

DRUGS (1)
  1. ZOMETA [Suspect]
     Active Substance: ZOLEDRONIC ACID

REACTIONS (6)
  - Breast cancer [None]
  - Malignant neoplasm progression [None]
  - Movement disorder [None]
  - Metastases to bone [None]
  - Visual impairment [None]
  - Pain [None]
